FAERS Safety Report 5262143-2 (Version None)
Quarter: 2007Q1

REPORT INFORMATION
  Report Type: 
  Country: None (occurrence: None)
  Receive Date: 20070311
  Receipt Date: 20070228
  Transmission Date: 20070707
  Serious: No
  Sender: FDA-Public Use
  Company Number: 2006UW10728

PATIENT
  Age: 397 Month
  Sex: Female
  Weight: 81 kg

DRUGS (10)
  1. SEROQUEL [Suspect]
     Indication: SLEEP DISORDER
     Route: 048
     Dates: start: 20041201, end: 20060301
  2. SEROQUEL [Suspect]
     Indication: BIPOLAR DISORDER
     Route: 048
     Dates: start: 20041201, end: 20060301
  3. SEROQUEL [Suspect]
     Indication: DEPRESSION
     Route: 048
     Dates: start: 20041201, end: 20060301
  4. ABILIFY [Suspect]
     Dates: start: 20041201
  5. RISPERDAL [Suspect]
     Dates: start: 20050101
  6. GEODON [Concomitant]
     Dates: start: 20041001
  7. PAXIL [Concomitant]
     Dosage: 10-20 MG DAILY
     Dates: start: 20020101
  8. LEXAPRO [Concomitant]
     Dates: start: 20030101
  9. DEPAKOTE [Concomitant]
     Dates: start: 20020101
  10. LAMICTAL [Concomitant]

REACTIONS (1)
  - DIABETES MELLITUS NON-INSULIN-DEPENDENT [None]
